FAERS Safety Report 13012479 (Version 1)
Quarter: 2016Q4

REPORT INFORMATION
  Report Type: Spontaneous
  Country: US (occurrence: US)
  Receive Date: 20161208
  Receipt Date: 20161208
  Transmission Date: 20170207
  Serious: Yes (Hospitalization)
  Sender: FDA-Public Use
  Company Number: None

PATIENT
  Sex: Female

DRUGS (2)
  1. NUTROPIN AQ NUSPIN 20 [Suspect]
     Active Substance: SOMATROPIN
     Indication: CYSTIC FIBROSIS
     Route: 058
     Dates: start: 20161108
  2. TOBI PODHALER [Suspect]
     Active Substance: TOBRAMYCIN
     Indication: BODY HEIGHT BELOW NORMAL
     Dates: start: 20160823

REACTIONS (2)
  - Cystic fibrosis [None]
  - Condition aggravated [None]

NARRATIVE: CASE EVENT DATE: 2016
